FAERS Safety Report 13550610 (Version 1)
Quarter: 2017Q2

REPORT INFORMATION
  Report Type: Spontaneous
  Country: FR (occurrence: FR)
  Receive Date: 20170516
  Receipt Date: 20170516
  Transmission Date: 20170830
  Serious: Yes (Hospitalization)
  Sender: FDA-Public Use
  Company Number: FR-SA-2017SA087233

PATIENT
  Age: 77 Year
  Sex: Male

DRUGS (10)
  1. COAPROVEL [Concomitant]
     Active Substance: HYDROCHLOROTHIAZIDE\IRBESARTAN
  2. FLECTOR [Concomitant]
     Active Substance: DICLOFENAC EPOLAMINE
  3. TAHOR [Concomitant]
     Active Substance: ATORVASTATIN CALCIUM
  4. APIDRA [Suspect]
     Active Substance: INSULIN GLULISINE
     Dosage: DOSE:20 UNIT(S)
     Route: 058
     Dates: end: 20170327
  5. CARDENSIEL [Suspect]
     Active Substance: BISOPROLOL FUMARATE
     Route: 048
     Dates: start: 20170327, end: 20170327
  6. ZOXAN [Concomitant]
     Active Substance: DOXAZOSIN MESYLATE
  7. LANTUS [Suspect]
     Active Substance: INSULIN GLARGINE
     Route: 058
     Dates: start: 20170327, end: 20170327
  8. LYRICA [Concomitant]
     Active Substance: PREGABALIN
  9. STILNOX [Suspect]
     Active Substance: ZOLPIDEM TARTRATE
     Route: 048
     Dates: end: 20170327
  10. METFORMIN [Concomitant]
     Active Substance: METFORMIN HYDROCHLORIDE

REACTIONS (4)
  - Bradycardia [Recovered/Resolved]
  - Hypoglycaemia [Recovered/Resolved]
  - Coma [Recovered/Resolved]
  - Overdose [Unknown]

NARRATIVE: CASE EVENT DATE: 20170327
